FAERS Safety Report 8243656-8 (Version None)
Quarter: 2012Q1

REPORT INFORMATION
  Report Type: 
  Country: None (occurrence: None)
  Receive Date: 20120329
  Receipt Date: 20120321
  Transmission Date: 20120608
  Serious: Yes (Hospitalization)
  Sender: FDA-Public Use
  Company Number: US-BAYER-201027984NA

PATIENT
  Age: 27 Year
  Sex: Female
  Weight: 118 kg

DRUGS (10)
  1. VOLTAREN [Concomitant]
     Dosage: 75 MG, BID
     Route: 048
     Dates: start: 20080722
  2. YASMIN [Suspect]
     Route: 048
     Dates: start: 20071101
  3. TYLENOL [Concomitant]
     Indication: PAIN
     Route: 048
  4. ALBUTEROL [Concomitant]
     Indication: ASTHMA
     Dosage: 0.083% 30ML 3 TIMES, 2 PUFFS PER DAY AS NEEDED
     Route: 055
     Dates: start: 20000101
  5. LEVONORGESTREL + ETHINYL ESTRADIOL [Concomitant]
     Dosage: UNK
     Dates: start: 20080710
  6. YAZ [Suspect]
     Indication: PREMENSTRUAL SYNDROME
     Dosage: UNK
     Route: 048
     Dates: start: 20071101, end: 20080701
  7. YAZ [Suspect]
     Indication: ACNE
  8. YAZ [Suspect]
  9. TYLENOL [Concomitant]
     Indication: HEADACHE
  10. LORTAB [Concomitant]
     Dosage: 5 MG, UNK
     Route: 048
     Dates: start: 20080722

REACTIONS (6)
  - PULMONARY EMBOLISM [None]
  - DEEP VEIN THROMBOSIS [None]
  - DYSPNOEA [None]
  - PAIN IN EXTREMITY [None]
  - CHEST DISCOMFORT [None]
  - OEDEMA PERIPHERAL [None]
